FAERS Safety Report 18131388 (Version 7)
Quarter: 2020Q3

REPORT INFORMATION
  Report Type: Report from Study
  Country: US (occurrence: US)
  Receive Date: 20200810
  Receipt Date: 20200916
  Transmission Date: 20201103
  Serious: Yes (Hospitalization)
  Sender: FDA-Public Use
  Company Number: NVSC2020US214943

PATIENT
  Age: 30 Year
  Sex: Female
  Weight: 108.39 kg

DRUGS (6)
  1. TREPROSTINIL. [Suspect]
     Active Substance: TREPROSTINIL
     Dosage: UNK (8 NG/KG/MIN)
     Route: 042
     Dates: start: 20200727
  2. TADALAFIL. [Concomitant]
     Active Substance: TADALAFIL
     Indication: PRODUCT USED FOR UNKNOWN INDICATION
     Dosage: UNK
     Route: 065
  3. ORENITRAM [Concomitant]
     Active Substance: TREPROSTINIL
     Indication: PRODUCT USED FOR UNKNOWN INDICATION
     Dosage: UNK
     Route: 065
  4. OPSUMIT [Concomitant]
     Active Substance: MACITENTAN
     Indication: PRODUCT USED FOR UNKNOWN INDICATION
     Dosage: UNK
     Route: 065
  5. ADCIRCA [Concomitant]
     Active Substance: TADALAFIL
     Indication: PULMONARY ARTERIAL HYPERTENSION
     Dosage: UNK
     Route: 065
  6. TREPROSTINIL. [Suspect]
     Active Substance: TREPROSTINIL
     Indication: PULMONARY ARTERIAL HYPERTENSION
     Dosage: UNK (6 NG/KG/MIN)
     Route: 042
     Dates: start: 20200727

REACTIONS (20)
  - Dermatitis contact [Unknown]
  - Cough [Recovering/Resolving]
  - Erythema [Unknown]
  - Fluid retention [Recovered/Resolved]
  - Diarrhoea [Recovering/Resolving]
  - Feeling hot [Unknown]
  - Nausea [Unknown]
  - Blister [Unknown]
  - Rash [Unknown]
  - Dyspepsia [Not Recovered/Not Resolved]
  - Skin irritation [Unknown]
  - Discharge [Unknown]
  - Vascular device infection [Unknown]
  - Breast enlargement [Unknown]
  - Pruritus [Recovering/Resolving]
  - Rash erythematous [Unknown]
  - Headache [Recovering/Resolving]
  - Swelling [Unknown]
  - Pain in extremity [Unknown]
  - Peripheral swelling [Unknown]

NARRATIVE: CASE EVENT DATE: 20200812
